FAERS Safety Report 13171900 (Version 11)
Quarter: 2020Q1

REPORT INFORMATION
  Report Type: Spontaneous
  Country: US (occurrence: US)
  Receive Date: 20170201
  Receipt Date: 20200214
  Transmission Date: 20200409
  Serious: Yes (Other)
  Sender: FDA-Public Use
  Company Number: US-PFIZER INC-2017040292

PATIENT
  Age: 45 Year
  Sex: Female
  Weight: 44 kg

DRUGS (6)
  1. LYRICA [Suspect]
     Active Substance: PREGABALIN
     Indication: INJURY
     Dosage: 150 MG, 3X/DAY
     Route: 048
     Dates: start: 201703
  2. LYRICA [Suspect]
     Active Substance: PREGABALIN
     Indication: SEIZURE
     Dosage: 150 MG, 3X/DAY
     Route: 048
     Dates: start: 2008
  3. LYRICA [Suspect]
     Active Substance: PREGABALIN
     Indication: FIBROMYALGIA
     Dosage: 150 MG, 3X/DAY
     Route: 048
     Dates: start: 20170129, end: 2017
  4. CYMBALTA [Concomitant]
     Active Substance: DULOXETINE HYDROCHLORIDE
     Dosage: UNK
  5. LYRICA [Suspect]
     Active Substance: PREGABALIN
     Indication: EPILEPSY
     Dosage: UNK
  6. GABAPENTIN. [Concomitant]
     Active Substance: GABAPENTIN
     Indication: FIBROMYALGIA
     Dosage: UNK

REACTIONS (9)
  - Contusion [Unknown]
  - Ankle fracture [Unknown]
  - Mobility decreased [Unknown]
  - Dyskinesia [Not Recovered/Not Resolved]
  - Suicidal ideation [Recovered/Resolved]
  - Malaise [Not Recovered/Not Resolved]
  - Pain [Unknown]
  - Gait disturbance [Recovering/Resolving]
  - Joint injury [Unknown]

NARRATIVE: CASE EVENT DATE: 20161101
